FAERS Safety Report 17143070 (Version 1)
Quarter: 2019Q4

REPORT INFORMATION
  Report Type: Spontaneous
  Country: US (occurrence: US)
  Receive Date: 20191119
  Receipt Date: 20191119
  Transmission Date: 20200122
  Serious: No
  Sender: FDA-Public Use
  Company Number: None

PATIENT
  Age: 21 Year
  Sex: Female

DRUGS (1)
  1. STIMATE [Suspect]
     Active Substance: DESMOPRESSIN ACETATE
     Indication: VON WILLEBRAND^S DISEASE
     Route: 045
     Dates: start: 20181020

REACTIONS (4)
  - Diverticulitis [None]
  - Blood magnesium decreased [None]
  - Vomiting [None]
  - Blood sodium decreased [None]

NARRATIVE: CASE EVENT DATE: 20191116
